FAERS Safety Report 12612683 (Version 4)
Quarter: 2017Q1

REPORT INFORMATION
  Report Type: Report from Study
  Country: CO (occurrence: CO)
  Receive Date: 20160801
  Receipt Date: 20170306
  Transmission Date: 20170428
  Serious: Yes (Life-Threatening, Other)
  Sender: FDA-Public Use
  Company Number: PHHY2016CO104841

PATIENT
  Sex: Female
  Weight: 55 kg

DRUGS (7)
  1. VOTRIENT [Suspect]
     Active Substance: PAZOPANIB HYDROCHLORIDE
     Dosage: 600 MG, QD (1 TABLET OF 400MG AND 1 OF 200MG DAILY)
     Route: 048
  2. VOTRIENT [Suspect]
     Active Substance: PAZOPANIB HYDROCHLORIDE
     Dosage: 400 MG, QD
     Route: 048
  3. SYNTHROID [Concomitant]
     Active Substance: LEVOTHYROXINE SODIUM
     Indication: PRODUCT USED FOR UNKNOWN INDICATION
     Route: 065
  4. ONDAX [Concomitant]
     Indication: PRODUCT USED FOR UNKNOWN INDICATION
     Route: 065
  5. VOTRIENT [Suspect]
     Active Substance: PAZOPANIB HYDROCHLORIDE
     Indication: RENAL CELL CARCINOMA
     Dosage: 400 MG, BID (02 TABLETS ONCE DAILY)
     Route: 048
     Dates: start: 20160619
  6. APROVASC [Concomitant]
     Active Substance: AMLODIPINE BESYLATE\IRBESARTAN
     Indication: PRODUCT USED FOR UNKNOWN INDICATION
     Route: 065
  7. HYOSCINE [Concomitant]
     Active Substance: SCOPOLAMINE
     Indication: PRODUCT USED FOR UNKNOWN INDICATION
     Route: 065

REACTIONS (19)
  - Diarrhoea [Unknown]
  - Abdominal pain [Unknown]
  - Hair colour changes [Unknown]
  - Thrombocytopenia [Unknown]
  - Hypertension [Recovering/Resolving]
  - Ageusia [Unknown]
  - Haematotoxicity [Unknown]
  - Gait disturbance [Unknown]
  - Incorrect dose administered [Unknown]
  - Skin discolouration [Unknown]
  - Hepatic enzyme increased [Unknown]
  - Alopecia [Unknown]
  - Hepatotoxicity [Unknown]
  - Blister [Unknown]
  - Vomiting [Unknown]
  - Drug dispensing error [Unknown]
  - Skin lesion [Unknown]
  - Mucosal inflammation [Unknown]
  - Hypothyroidism [Unknown]
